FAERS Safety Report 19905715 (Version 4)
Quarter: 2022Q1

REPORT INFORMATION
  Report Type: Report from Study
  Country: PA (occurrence: PA)
  Receive Date: 20211001
  Receipt Date: 20220121
  Transmission Date: 20220423
  Serious: Yes (Hospitalization, Other)
  Sender: FDA-Public Use
  Company Number: PA-SA-2020SA275783

PATIENT
  Age: 52 Year
  Sex: Female

DRUGS (5)
  1. ALEMTUZUMAB [Suspect]
     Active Substance: ALEMTUZUMAB
     Indication: Multiple sclerosis
     Dosage: UNK UNK, QD
     Route: 041
     Dates: start: 20200929, end: 20201001
  2. ALEMTUZUMAB [Suspect]
     Active Substance: ALEMTUZUMAB
     Dosage: UNK UNK, QD
     Route: 041
     Dates: start: 20190708, end: 20190712
  3. VALPROIC ACID [Suspect]
     Active Substance: VALPROIC ACID
     Indication: Personality disorder
  4. ALLEGRA [Concomitant]
     Active Substance: FEXOFENADINE HYDROCHLORIDE
     Dosage: UNK UNK, QD
     Route: 048
  5. ACETAMINOPHEN [Concomitant]
     Active Substance: ACETAMINOPHEN
     Indication: Pain management
     Dosage: UNK
     Route: 065

REACTIONS (16)
  - Personality disorder [Recovering/Resolving]
  - Hallucination, auditory [Recovering/Resolving]
  - Dysphonia [Recovering/Resolving]
  - Headache [Recovering/Resolving]
  - Rash [Recovering/Resolving]
  - Pyrexia [Recovering/Resolving]
  - Somnolence [Recovering/Resolving]
  - Photosensitivity reaction [Recovering/Resolving]
  - Muscle spasms [Recovering/Resolving]
  - Rash [Recovering/Resolving]
  - Pruritus [Recovering/Resolving]
  - Muscular weakness [Recovering/Resolving]
  - Myalgia [Recovering/Resolving]
  - Pyrexia [Recovering/Resolving]
  - Fatigue [Recovering/Resolving]
  - Headache [Recovering/Resolving]

NARRATIVE: CASE EVENT DATE: 20201001
